FAERS Safety Report 5406174-8 (Version None)
Quarter: 2007Q3

REPORT INFORMATION
  Report Type: 
  Country: None (occurrence: None)
  Receive Date: 20070802
  Receipt Date: 20070802
  Transmission Date: 20080115
  Serious: Yes (Hospitalization)
  Sender: FDA-Public Use
  Company Number: None

PATIENT
  Age: 68 Year
  Sex: Female

DRUGS (12)
  1. FLUCONAZOLE [Suspect]
     Indication: PULMONARY EMBOLISM
     Dosage: 200 MG DAILY PO 1 MONTH PTA
     Route: 048
  2. WARFARIN SODIUM [Suspect]
     Indication: ONYCHOMYCOSIS
     Dosage: 5 MG DAILY PO FEW DAYS PTA
     Route: 048
  3. LISINOPRIL [Concomitant]
  4. LIPITOR [Concomitant]
  5. ZOLOFT [Concomitant]
  6. CLONAZEPAM [Concomitant]
  7. ASPIRIN [Concomitant]
  8. COUMADIN [Concomitant]
  9. VITAMIN B-12 [Concomitant]
  10. VITAMIN D [Concomitant]
  11. CALCIUM CHLORIDE [Concomitant]
  12. DIFLUCAN [Concomitant]

REACTIONS (4)
  - COAGULOPATHY [None]
  - INTERNATIONAL NORMALISED RATIO INCREASED [None]
  - ONYCHOMYCOSIS [None]
  - TONGUE HAEMATOMA [None]
